FAERS Safety Report 17765486 (Version 1)
Quarter: 2020Q2

REPORT INFORMATION
  Report Type: Spontaneous
  Country: US (occurrence: US)
  Receive Date: 20200511
  Receipt Date: 20200511
  Transmission Date: 20200714
  Serious: No
  Sender: FDA-Public Use
  Company Number: US-PFIZER INC-2020187265

PATIENT
  Age: 58 Year
  Sex: Female

DRUGS (1)
  1. IBRANCE [Suspect]
     Active Substance: PALBOCICLIB
     Dosage: 125 MG, CYCLIC (TAKE 1 CAPSULE (125MG) DAILY FOR 21 DAYS, FOLLOWED BY 7 DAY REST PERIOD)
     Route: 048
     Dates: start: 20191009

REACTIONS (1)
  - Dry skin [Unknown]
